FAERS Safety Report 10108504 (Version 1)
Quarter: 2014Q2

REPORT INFORMATION
  Report Type: Spontaneous
  Country: CA (occurrence: CA)
  Receive Date: 20140425
  Receipt Date: 20140425
  Transmission Date: 20141212
  Serious: Yes (Hospitalization)
  Sender: FDA-Public Use
  Company Number: CA-009507513-1404CAN011553

PATIENT
  Age: 63 Year
  Sex: Female

DRUGS (1)
  1. TEMODAL [Suspect]
     Indication: GLIOBLASTOMA
     Dosage: 155 MG DAILY
     Route: 048
     Dates: start: 20140324

REACTIONS (2)
  - Colectomy [Unknown]
  - Incision site infection [Not Recovered/Not Resolved]
